FAERS Safety Report 5774522-5 (Version None)
Quarter: 2008Q2

REPORT INFORMATION
  Report Type: 
  Country: None (occurrence: None)
  Receive Date: 20080616
  Receipt Date: 20080607
  Transmission Date: 20081010
  Serious: Yes (Other)
  Sender: FDA-Public Use
  Company Number: ES-ABBOTT-08P-144-0456282-00

PATIENT
  Age: 65 Year
  Sex: Male

DRUGS (1)
  1. NAVIXEN [Suspect]
     Indication: HYPERTENSION
     Route: 048
     Dates: start: 20080422

REACTIONS (1)
  - ERECTILE DYSFUNCTION [None]
